FAERS Safety Report 9097735 (Version 2)
Quarter: 2013Q2

REPORT INFORMATION
  Report Type: Spontaneous
  Country: FR (occurrence: FR)
  Receive Date: 20130212
  Receipt Date: 20130425
  Transmission Date: 20140414
  Serious: Yes (Other)
  Sender: FDA-Public Use
  Company Number: PHHY2013FR012809

PATIENT
  Age: 22 Year
  Sex: Male
  Weight: 72 kg

DRUGS (3)
  1. VOTUBIA [Suspect]
     Dosage: 5 MG, BID
     Route: 048
     Dates: start: 201201
  2. TEGRETOL [Concomitant]
     Indication: EPILEPSY
     Route: 048
     Dates: start: 2000
  3. ZYPREXA [Concomitant]
     Route: 048
     Dates: start: 2000

REACTIONS (3)
  - Psoriasis [Recovering/Resolving]
  - Acne [Not Recovered/Not Resolved]
  - Rash [Recovering/Resolving]
